FAERS Safety Report 18215030 (Version 1)
Quarter: 2020Q3

REPORT INFORMATION
  Report Type: Report from Study
  Country: PK (occurrence: PK)
  Receive Date: 20200831
  Receipt Date: 20200831
  Transmission Date: 20201103
  Serious: Yes (Death)
  Sender: FDA-Public Use
  Company Number: NVSC2020PK239923

PATIENT
  Age: 74 Year
  Sex: Male

DRUGS (3)
  1. SINEMET [Concomitant]
     Active Substance: CARBIDOPA\LEVODOPA
     Indication: SENILE DEMENTIA
     Dosage: 0.5 OT, QID
     Route: 048
     Dates: start: 20181109
  2. CITOGRAIN [Concomitant]
     Indication: SENILE DEMENTIA
     Dosage: 1, QD
     Route: 048
     Dates: start: 20190110
  3. EXELON [Suspect]
     Active Substance: RIVASTIGMINE TARTRATE
     Indication: SENILE DEMENTIA
     Dosage: 9 MG/5 CM2
     Route: 062
     Dates: start: 20190110

REACTIONS (1)
  - Renal disorder [Fatal]

NARRATIVE: CASE EVENT DATE: 202003
